FAERS Safety Report 17499329 (Version 1)
Quarter: 2020Q1

REPORT INFORMATION
  Report Type: Spontaneous
  Country: US (occurrence: US)
  Receive Date: 20200305
  Receipt Date: 20200305
  Transmission Date: 20200409
  Serious: No
  Sender: FDA-Public Use
  Company Number: US-CIPLA LTD.-2019US08157

PATIENT

DRUGS (2)
  1. BUDESONIDE. [Suspect]
     Active Substance: BUDESONIDE
     Dosage: 1 DOSAGE FORM, QD (1 AMPOULE 1 MG/2ML, ONCE A DAY)
     Dates: start: 20190922
  2. BUDESONIDE. [Suspect]
     Active Substance: BUDESONIDE
     Indication: PRODUCT USED FOR UNKNOWN INDICATION
     Dosage: UNK
     Route: 065

REACTIONS (6)
  - Fatigue [Unknown]
  - Dyspnoea [Recovered/Resolved]
  - Headache [Recovered/Resolved]
  - Product colour issue [Unknown]
  - Dysphonia [Not Recovered/Not Resolved]
  - Product label confusion [Unknown]

NARRATIVE: CASE EVENT DATE: 2019
